FAERS Safety Report 10204313 (Version 2)
Quarter: 2014Q2

REPORT INFORMATION
  Report Type: Spontaneous
  Country: JP (occurrence: JP)
  Receive Date: 20140529
  Receipt Date: 20140609
  Transmission Date: 20141212
  Serious: Yes (Hospitalization)
  Sender: FDA-Public Use
  Company Number: JP-NOVOPROD-411222

PATIENT
  Age: 73 Year
  Sex: Male
  Weight: 46 kg

DRUGS (2)
  1. NOVORAPID CHU [Suspect]
     Indication: DIABETES MELLITUS
     Dosage: 23 IU, QD
     Route: 058
     Dates: start: 200706
  2. LANTUS [Suspect]
     Indication: DIABETES MELLITUS
     Dosage: 12 IU, QD
     Route: 058
     Dates: start: 200904

REACTIONS (3)
  - Lack of injection site rotation [Recovered/Resolved]
  - Cutaneous amyloidosis [Recovered/Resolved]
  - Diabetes mellitus inadequate control [Recovered/Resolved]
